FAERS Safety Report 6549077-8 (Version None)
Quarter: 2010Q1

REPORT INFORMATION
  Report Type: 
  Country: None (occurrence: None)
  Receive Date: 20100119
  Receipt Date: 20100112
  Transmission Date: 20100710
  Serious: Yes (Death)
  Sender: FDA-Public Use
  Company Number: 2009SP041549

PATIENT
  Age: 60 Year
  Sex: Male

DRUGS (1)
  1. POSACONAZOLE [Suspect]
     Indication: ANTIFUNGAL PROPHYLAXIS
     Dosage: 200 MG; TID;, 400 MG; BID;

REACTIONS (4)
  - PULMONARY HAEMORRHAGE [None]
  - THROMBOCYTOPENIA [None]
  - TREATMENT FAILURE [None]
  - ZYGOMYCOSIS [None]
